FAERS Safety Report 19690917 (Version 1)
Quarter: 2021Q3

REPORT INFORMATION
  Report Type: Spontaneous
  Country: US (occurrence: US)
  Receive Date: 20210812
  Receipt Date: 20210812
  Transmission Date: 20211014
  Serious: No
  Sender: FDA-Public Use
  Company Number: US-PFIZER INC-2021893508

PATIENT

DRUGS (1)
  1. BRAFTOVI [Suspect]
     Active Substance: ENCORAFENIB
     Dosage: UNK

REACTIONS (5)
  - Abdominal pain [Unknown]
  - Insomnia [Unknown]
  - Hypoacusis [Unknown]
  - Nausea [Unknown]
  - Abdominal discomfort [Unknown]
